FAERS Safety Report 18955799 (Version 2)
Quarter: 2021Q1

REPORT INFORMATION
  Report Type: Spontaneous
  Country: RU (occurrence: RU)
  Receive Date: 20210301
  Receipt Date: 20210315
  Transmission Date: 20210420
  Serious: Yes (Death, Other)
  Sender: FDA-Public Use
  Company Number: RU-AMERICAN REGENT INC-2021000471

PATIENT
  Age: 37 Year
  Sex: Female
  Weight: 80 kg

DRUGS (7)
  1. CEFTRIAXONE. [Suspect]
     Active Substance: CEFTRIAXONE
     Indication: ANTIBIOTIC THERAPY
     Dosage: 2 GRAM, 1 IN 1D
     Route: 042
     Dates: start: 20200515, end: 20200518
  2. FERINJECT [Suspect]
     Active Substance: FERRIC CARBOXYMALTOSE
     Indication: ANAEMIA
     Dosage: UNK
     Route: 042
     Dates: start: 202005, end: 202005
  3. AZITHROMYCIN ANHYDROUS. [Suspect]
     Active Substance: AZITHROMYCIN ANHYDROUS
     Indication: ANTIBIOTIC THERAPY
     Dosage: 500 MILLIGRAM, QD
     Route: 065
     Dates: start: 20200515, end: 20200521
  4. KALETRA [Suspect]
     Active Substance: LOPINAVIR\RITONAVIR
     Indication: PRODUCT USED FOR UNKNOWN INDICATION
     Dosage: 200/50 MG (4 IN 1D)
     Route: 065
     Dates: start: 202005, end: 202005
  5. VENOFER [Suspect]
     Active Substance: IRON SUCROSE
     Indication: ANAEMIA
     Dosage: UNK
     Route: 042
     Dates: start: 202005, end: 202005
  6. MALTOFER                           /00023548/ [Suspect]
     Active Substance: IRON POLYMALTOSE
     Indication: ANAEMIA
     Dosage: UNK
     Route: 048
     Dates: start: 202005, end: 202005
  7. AMOKSIKLAV                         /00756801/ [Suspect]
     Active Substance: AMOXICILLIN\CLAVULANATE POTASSIUM
     Indication: ANTIBIOTIC THERAPY
     Dosage: 1.2 GM, 3 IN 1 D
     Route: 042
     Dates: start: 20200519, end: 20200521

REACTIONS (14)
  - Postpartum haemorrhage [Unknown]
  - C-reactive protein increased [Unknown]
  - Treatment noncompliance [Unknown]
  - Poisoning [Unknown]
  - Respiratory failure [Unknown]
  - Procalcitonin increased [Unknown]
  - Aggression [Unknown]
  - Foetal death [Unknown]
  - Encephalopathy [Unknown]
  - White blood cell count increased [Unknown]
  - Mood swings [Unknown]
  - Maternal exposure during pregnancy [Unknown]
  - Cardiac arrest [Recovered/Resolved]
  - Inflammatory marker increased [Unknown]

NARRATIVE: CASE EVENT DATE: 202005
